FAERS Safety Report 5149750-2 (Version None)
Quarter: 2006Q4

REPORT INFORMATION
  Report Type: 
  Country: None (occurrence: None)
  Receive Date: 20061113
  Receipt Date: 20061027
  Transmission Date: 20070319
  Serious: No
  Sender: FDA-Public Use
  Company Number: US-AMGEN-US198398

PATIENT
  Sex: Female
  Weight: 74.3 kg

DRUGS (10)
  1. ARANESP [Suspect]
     Indication: RENAL FAILURE CHRONIC
     Route: 058
     Dates: start: 20060110, end: 20060413
  2. EPOGEN [Suspect]
     Indication: RENAL FAILURE CHRONIC
     Route: 058
     Dates: start: 20060801, end: 20060801
  3. HYDRALAZINE HYDROCHLORIDE [Concomitant]
  4. ZEMPLAR [Concomitant]
  5. CELLCEPT [Concomitant]
  6. LISINOPRIL [Concomitant]
  7. LASIX [Concomitant]
  8. PREDNISONE TAB [Concomitant]
  9. METOPROLOL TARTRATE [Concomitant]
  10. BENICAR [Concomitant]

REACTIONS (3)
  - HEADACHE [None]
  - NAUSEA [None]
  - VOMITING [None]
